FAERS Safety Report 10682346 (Version 2)
Quarter: 2014Q4

REPORT INFORMATION
  Report Type: Report from Study
  Country: FR (occurrence: FR)
  Receive Date: 20141230
  Receipt Date: 20141230
  Transmission Date: 20150529
  Serious: Yes (Death, Hospitalization)
  Sender: FDA-Public Use
  Company Number: FR-EMD SERONO-7247583

PATIENT
  Age: 65 Year
  Sex: Female
  Weight: 48 kg

DRUGS (5)
  1. OXYNORM [Concomitant]
     Active Substance: OXYCODONE HYDROCHLORIDE
     Indication: PAIN
     Route: 048
     Dates: start: 20130816
  2. TRAVATAN [Concomitant]
     Active Substance: TRAVOPROST
     Indication: INTRAOCULAR PRESSURE INCREASED
     Route: 048
     Dates: start: 20130823
  3. MEK INHIBITOR (MSC1936369B) [Suspect]
     Active Substance: PIMASERTIB HYDROCHLORIDE
     Indication: MALIGNANT MELANOMA
     Route: 048
     Dates: start: 20131004, end: 20131024
  4. PROFENID                           /00321701/ [Concomitant]
     Indication: PAIN
     Route: 048
     Dates: start: 20130906
  5. LYRICA [Concomitant]
     Active Substance: PREGABALIN
     Indication: PAIN
     Route: 048
     Dates: start: 201308

REACTIONS (2)
  - Sepsis [Fatal]
  - Cardiac failure [Unknown]

NARRATIVE: CASE EVENT DATE: 20131030
